FAERS Safety Report 14025420 (Version 1)
Quarter: 2017Q3

REPORT INFORMATION
  Report Type: Spontaneous
  Country: US (occurrence: US)
  Receive Date: 20170929
  Receipt Date: 20170929
  Transmission Date: 20171128
  Serious: Yes (Hospitalization)
  Sender: FDA-Public Use
  Company Number: US-VIFOR (INTERNATIONAL) INC.-VIT-2017-09743

PATIENT
  Sex: Female

DRUGS (25)
  1. CRANBERRY. [Concomitant]
     Active Substance: CRANBERRY
  2. MELATONIN [Concomitant]
     Active Substance: MELATONIN
  3. VASCULERA [Concomitant]
  4. FIBER [Concomitant]
     Active Substance: PSYLLIUM HUSK
  5. VELTASSA [Suspect]
     Active Substance: PATIROMER
     Indication: HYPERKALAEMIA
     Route: 048
     Dates: start: 20160524
  6. MAGNESIUM ASPARTATE [Concomitant]
     Active Substance: MAGNESIUM ASPARTATE
  7. PIOGLITAZONE HYDROCHLORIDE. [Concomitant]
     Active Substance: PIOGLITAZONE HYDROCHLORIDE
  8. LEVEMIR [Concomitant]
     Active Substance: INSULIN DETEMIR
  9. RANITIDINE HYDROCHLORIDE. [Concomitant]
     Active Substance: RANITIDINE HYDROCHLORIDE
  10. EDARBI [Concomitant]
     Active Substance: AZILSARTAN KAMEDOXOMIL
  11. ARMOUR THYROID [Concomitant]
     Active Substance: THYROID, PORCINE
  12. ASPIR-81 [Concomitant]
     Active Substance: ASPIRIN
  13. HYDRALAZINE HYDROCHLORIDE. [Concomitant]
     Active Substance: HYDRALAZINE HYDROCHLORIDE
  14. CYCLOBENZAPRINE. [Concomitant]
     Active Substance: CYCLOBENZAPRINE
  15. NIFEDIPINE. [Concomitant]
     Active Substance: NIFEDIPINE
  16. HUMALOG KWIKPEN [Concomitant]
     Active Substance: INSULIN LISPRO
  17. STOOL SOFTENER (DOCUSATE) [Concomitant]
     Active Substance: DOCUSATE
  18. BENADRYL ALLERGY [Concomitant]
     Active Substance: DIPHENHYDRAMINE HYDROCHLORIDE
  19. ISOSORBIDE DINITRATE. [Concomitant]
     Active Substance: ISOSORBIDE DINITRATE
  20. ISOSORBIDE MONONITRATE. [Concomitant]
     Active Substance: ISOSORBIDE MONONITRATE
  21. LASIX [Concomitant]
     Active Substance: FUROSEMIDE
  22. LINZESS [Concomitant]
     Active Substance: LINACLOTIDE
  23. CLONIDINE HYDROCHLORIDE. [Concomitant]
     Active Substance: CLONIDINE HYDROCHLORIDE
  24. RANEXA [Concomitant]
     Active Substance: RANOLAZINE
  25. BRILINTA [Concomitant]
     Active Substance: TICAGRELOR

REACTIONS (4)
  - Drug dose omission [Unknown]
  - Coronary arterial stent insertion [Unknown]
  - Chest discomfort [Unknown]
  - Hypertension [Unknown]

NARRATIVE: CASE EVENT DATE: 2017
